FAERS Safety Report 20654903 (Version 2)
Quarter: 2022Q2

REPORT INFORMATION
  Report Type: Spontaneous
  Country: DE (occurrence: DE)
  Receive Date: 20220330
  Receipt Date: 20220411
  Transmission Date: 20220721
  Serious: Yes (Other)
  Sender: FDA-Public Use
  Company Number: DE-BoehringerIngelheim-2022-BI-159082

PATIENT
  Age: 70 Year
  Sex: Female
  Weight: 65 kg

DRUGS (4)
  1. LEVETIRACETAM [Suspect]
     Active Substance: LEVETIRACETAM
     Indication: Product used for unknown indication
     Dosage: UNK
     Dates: end: 20220211
  2. GILOTRIF [Suspect]
     Active Substance: AFATINIB
     Indication: Bronchial carcinoma
     Dosage: 30 MILLIGRAM, ONCE DAILY (QD)
  3. GILOTRIF [Suspect]
     Active Substance: AFATINIB
     Dosage: 35 MILLIGRAM, ONCE DAILY (QD) IN THE MORNING
     Dates: start: 20211216
  4. GILOTRIF [Suspect]
     Active Substance: AFATINIB
     Dosage: 20 MILLIGRAM, ONCE DAILY (QD) WITH PAUSES AT THE WEEKENDS

REACTIONS (4)
  - Diarrhoea [Recovering/Resolving]
  - Dry skin [Recovering/Resolving]
  - Ageusia [Recovering/Resolving]
  - Dry mouth [Recovering/Resolving]
